FAERS Safety Report 11591395 (Version 2)
Quarter: 2016Q1

REPORT INFORMATION
  Report Type: Report from Study
  Country: CA (occurrence: CA)
  Receive Date: 20151005
  Receipt Date: 20160212
  Transmission Date: 20160525
  Serious: Yes (Hospitalization, Other)
  Sender: FDA-Public Use
  Company Number: CA-AMGEN-CANSL2015102083

PATIENT
  Age: 85 Year
  Sex: Female

DRUGS (1)
  1. PROLIA [Suspect]
     Active Substance: DENOSUMAB
     Indication: OSTEOPOROSIS POSTMENOPAUSAL
     Dosage: 60 MG/ML, Q6MO
     Route: 058
     Dates: start: 20150129

REACTIONS (3)
  - Cardiac disorder [Unknown]
  - Intestinal obstruction [Unknown]
  - Crohn^s disease [Unknown]
